FAERS Safety Report 4773494-X (Version None)
Quarter: 2005Q3

REPORT INFORMATION
  Report Type: 
  Country: None (occurrence: None)
  Receive Date: 20050914
  Receipt Date: 20041021
  Transmission Date: 20060218
  Serious: Yes (Death)
  Sender: FDA-Public Use
  Company Number: 163-20785-04100639

PATIENT
  Sex: Male

DRUGS (4)
  1. THALOMID [Suspect]
     Indication: MYELODYSPLASTIC SYNDROME
     Dosage: 200 MG, QHS, ORAL
     Route: 048
     Dates: start: 20040925, end: 20041201
  2. PROCRIT [Concomitant]
  3. PREDNISONE [Concomitant]
  4. LASIX [Concomitant]

REACTIONS (2)
  - DISEASE PROGRESSION [None]
  - FULL BLOOD COUNT DECREASED [None]
